FAERS Safety Report 5456066-3 (Version None)
Quarter: 2007Q3

REPORT INFORMATION
  Report Type: 
  Country: None (occurrence: None)
  Receive Date: 20070918
  Receipt Date: 20070330
  Transmission Date: 20080115
  Serious: Yes (Other)
  Sender: FDA-Public Use
  Company Number: US-ASTRAZENECA-2006UW23708

PATIENT
  Sex: Female
  Weight: 100.9 kg

DRUGS (9)
  1. SEROQUEL [Suspect]
     Indication: MENTAL DISORDER
     Route: 048
     Dates: start: 20010305
  2. SEROQUEL [Suspect]
     Route: 048
  3. CLOZARIL [Concomitant]
  4. GEODON [Concomitant]
  5. HALDOL [Concomitant]
     Dates: start: 19441001
  6. RISPERDAL [Concomitant]
  7. ZYPREXA [Concomitant]
  8. PAXIL [Concomitant]
  9. LORAZEPAM [Concomitant]
     Dates: start: 19940101

REACTIONS (2)
  - DIABETES MELLITUS [None]
  - TARDIVE DYSKINESIA [None]
